FAERS Safety Report 7166184-X (Version None)
Quarter: 2010Q4

REPORT INFORMATION
  Report Type: 
  Country: None (occurrence: None)
  Receive Date: 20101202
  Receipt Date: 20101117
  Transmission Date: 20110411
  Serious: Yes (Death, Other)
  Sender: FDA-Public Use
  Company Number: THQ2010A03524

PATIENT
  Sex: Female

DRUGS (2)
  1. LANSOPRAZOLE [Suspect]
     Indication: PRODUCT USED FOR UNKNOWN INDICATION
     Dosage: 30 MG (1 D) PER ORAL
     Route: 048
  2. UNSPECIFIED PROTON PUMP INHIBITORS (PROTON PUMP INHIBITORS) [Concomitant]

REACTIONS (1)
  - GASTRIC PH INCREASED [None]
